FAERS Safety Report 19201774 (Version 2)
Quarter: 2022Q1

REPORT INFORMATION
  Report Type: Spontaneous
  Country: US (occurrence: US)
  Receive Date: 20210430
  Receipt Date: 20220110
  Transmission Date: 20220423
  Serious: Yes (Hospitalization, Other)
  Sender: FDA-Public Use
  Company Number: US-SUN PHARMACEUTICAL INDUSTRIES LTD-2021R1-292525

PATIENT
  Age: 8 Year
  Sex: Male

DRUGS (5)
  1. GUANFACINE [Interacting]
     Active Substance: GUANFACINE
     Indication: Attention deficit hyperactivity disorder
     Dosage: 5 MILLIGRAM, 2 DOSE
     Route: 065
  2. DEXMETHYLPHENIDATE [Interacting]
     Active Substance: DEXMETHYLPHENIDATE
     Indication: Attention deficit hyperactivity disorder
     Dosage: 20 MG
     Route: 065
  3. DEXMETHYLPHENIDATE [Interacting]
     Active Substance: DEXMETHYLPHENIDATE
     Indication: Hallucination, auditory
  4. RISPERIDONE [Interacting]
     Active Substance: RISPERIDONE
     Indication: Attention deficit hyperactivity disorder
     Dosage: 0.25 MG EVENING
     Route: 065
  5. RISPERIDONE [Interacting]
     Active Substance: RISPERIDONE
     Indication: Hallucination, auditory

REACTIONS (3)
  - Overdose [Unknown]
  - Hypotension [Recovered/Resolved]
  - Bradycardia [Recovered/Resolved]
